FAERS Safety Report 5371804-6 (Version None)
Quarter: 2007Q2

REPORT INFORMATION
  Report Type: 
  Country: None (occurrence: None)
  Receive Date: 20070625
  Receipt Date: 20070611
  Transmission Date: 20071010
  Serious: Yes (Hospitalization)
  Sender: FDA-Public Use
  Company Number: 2007BI012402

PATIENT
  Age: 58 Year
  Sex: Male
  Weight: 70 kg

DRUGS (6)
  1. AVONEX [Suspect]
     Indication: MULTIPLE SCLEROSIS
     Dosage: 30 UG;QW;IM
     Route: 030
     Dates: start: 20070201
  2. IBUHEXAL [Concomitant]
  3. TIMOHEXAL [Concomitant]
  4. LEBIC [Concomitant]
  5. TIM-OPHTAL [Concomitant]
  6. TORACARD [Concomitant]

REACTIONS (2)
  - ERYSIPELAS [None]
  - INFLUENZA LIKE ILLNESS [None]
